FAERS Safety Report 25242297 (Version 1)
Quarter: 2025Q2

REPORT INFORMATION
  Report Type: Report from Study
  Country: US (occurrence: US)
  Receive Date: 20250428
  Receipt Date: 20250428
  Transmission Date: 20250716
  Serious: Yes (Disabling, Other)
  Sender: BOEHRINGER INGELHEIM
  Company Number: US-BoehringerIngelheim-2023-BI-234242

PATIENT
  Age: 63 Year
  Sex: Female

DRUGS (2)
  1. OFEV [Suspect]
     Active Substance: NINTEDANIB
     Indication: Pulmonary fibrosis
  2. OFEV [Suspect]
     Active Substance: NINTEDANIB
     Dates: start: 20230411

REACTIONS (31)
  - Headache [Not Recovered/Not Resolved]
  - Contusion [Not Recovered/Not Resolved]
  - Anxiety [Not Recovered/Not Resolved]
  - Scleroderma [Unknown]
  - Hypertension [Not Recovered/Not Resolved]
  - Rheumatoid arthritis [Unknown]
  - Productive cough [Not Recovered/Not Resolved]
  - Dyspnoea exertional [Not Recovered/Not Resolved]
  - Alopecia [Recovered/Resolved]
  - Diarrhoea [Recovered/Resolved]
  - Nausea [Recovered/Resolved]
  - Vomiting [Recovered/Resolved]
  - Immobile [Not Recovered/Not Resolved]
  - Nasopharyngitis [Not Recovered/Not Resolved]
  - Depression [Not Recovered/Not Resolved]
  - Insomnia [Not Recovered/Not Resolved]
  - Fatigue [Not Recovered/Not Resolved]
  - Psychiatric symptom [Not Recovered/Not Resolved]
  - Hepatic enzyme increased [Recovered/Resolved with Sequelae]
  - Pruritus [Not Recovered/Not Resolved]
  - Liver function test increased [Not Recovered/Not Resolved]
  - Abdominal distension [Unknown]
  - Faeces discoloured [Unknown]
  - Alanine aminotransferase increased [Unknown]
  - Abdominal discomfort [Unknown]
  - Sputum discoloured [Unknown]
  - Somnolence [Unknown]
  - Scoliosis [Unknown]
  - Vertebral foraminal stenosis [Unknown]
  - Spinal osteoarthritis [Unknown]
  - Sputum increased [Unknown]

NARRATIVE: CASE EVENT DATE: 20231001
